FAERS Safety Report 4770757-9 (Version None)
Quarter: 2005Q3

REPORT INFORMATION
  Report Type: 
  Country: None (occurrence: None)
  Receive Date: 20050914
  Receipt Date: 20050905
  Transmission Date: 20060218
  Serious: Yes (Hospitalization)
  Sender: FDA-Public Use
  Company Number: 2005124432

PATIENT
  Age: 21 Year
  Sex: Female

DRUGS (1)
  1. DEPO-RALOVERA (MEDROXYPROGESTERONE ACETATE) [Suspect]
     Indication: ILL-DEFINED DISORDER
     Dates: start: 20050101

REACTIONS (1)
  - CHEST PAIN [None]
